FAERS Safety Report 5962096-5 (Version None)
Quarter: 2008Q4

REPORT INFORMATION
  Report Type: 
  Country: None (occurrence: None)
  Receive Date: 20081121
  Receipt Date: 20081112
  Transmission Date: 20090506
  Serious: Yes (Other)
  Sender: FDA-Public Use
  Company Number: PHHY2008IE27694

PATIENT
  Sex: Male

DRUGS (4)
  1. CLOZARIL [Suspect]
     Indication: SCHIZOPHRENIA
     Dosage: 650 MG, UNK
     Route: 048
  2. CLOZARIL [Suspect]
     Dosage: 650 MG, UNK
  3. HALOPERIDOL [Concomitant]
     Dosage: UNK
  4. EPILIM [Concomitant]
     Dosage: UNK

REACTIONS (7)
  - DRUG LEVEL INCREASED [None]
  - DYSPHAGIA [None]
  - MENTAL DISORDER [None]
  - MYOCLONUS [None]
  - PARANOIA [None]
  - SALIVARY HYPERSECRETION [None]
  - URINARY INCONTINENCE [None]
